FAERS Safety Report 8784492 (Version 2)
Quarter: 2012Q4

REPORT INFORMATION
  Report Type: 
  Country: US (occurrence: US)
  Receive Date: 20120913
  Receipt Date: 20120917
  Transmission Date: 20130627
  Serious: Yes (Other)
  Sender: FDA-Public Use
  Company Number: US-PFIZER INC-2011283326

PATIENT
  Age: 69 Year
  Sex: Female
  Weight: 56.69 kg

DRUGS (4)
  1. PROTONIX [Suspect]
     Dosage: 40 mg, daily
     Route: 065
  2. PROTONIX [Suspect]
     Dosage: 10 mg, 1x/day
     Route: 048
  3. VITAMIN D [Concomitant]
     Dosage: 2000 IU, daily
  4. SINGULAIR [Concomitant]
     Indication: ASTHMA
     Dosage: UNK

REACTIONS (5)
  - Asthma [Unknown]
  - Parathyroid disorder [Unknown]
  - Blood glucose abnormal [Recovered/Resolved]
  - Amnesia [Unknown]
  - Drug ineffective [Unknown]
